FAERS Safety Report 13545277 (Version 2)
Quarter: 2017Q2

REPORT INFORMATION
  Report Type: Spontaneous
  Country: US (occurrence: US)
  Receive Date: 20170515
  Receipt Date: 20170609
  Transmission Date: 20170830
  Serious: Yes (Life-Threatening, Other)
  Sender: FDA-Public Use
  Company Number: US-PFIZER INC-2017206659

PATIENT
  Age: 74 Year
  Sex: Male
  Weight: 76 kg

DRUGS (7)
  1. METOPROLOL TARTRATE. [Suspect]
     Active Substance: METOPROLOL TARTRATE
     Dosage: UNK, DAILY
  2. PROPOFOL. [Suspect]
     Active Substance: PROPOFOL
     Indication: GENERAL ANAESTHESIA
     Dosage: DIVIDED DOSES
     Route: 042
  3. ZICONOTIDE [Suspect]
     Active Substance: ZICONOTIDE
     Indication: BACK PAIN
     Dosage: UNK
     Route: 037
  4. SUCCINYLCHOLINE [Suspect]
     Active Substance: SUCCINYLCHOLINE
     Indication: GENERAL ANAESTHESIA
     Dosage: 120 MG, UNK
     Route: 042
  5. ZICONOTIDE [Suspect]
     Active Substance: ZICONOTIDE
     Dosage: 0.6 UG/H
     Route: 037
  6. FENTANYL CITRATE. [Suspect]
     Active Substance: FENTANYL CITRATE
     Indication: GENERAL ANAESTHESIA
     Dosage: 100 UG, UNK
     Route: 042
  7. LIDOCAINE HCL [Suspect]
     Active Substance: LIDOCAINE HYDROCHLORIDE
     Indication: GENERAL ANAESTHESIA
     Dosage: 60 MG, UNK
     Route: 042

REACTIONS (1)
  - Vasoplegia syndrome [Unknown]
